FAERS Safety Report 6310316-X (Version None)
Quarter: 2009Q3

REPORT INFORMATION
  Report Type: 
  Country: None (occurrence: None)
  Receive Date: 20090814
  Receipt Date: 20090804
  Transmission Date: 20100115
  Serious: Yes (Other)
  Sender: FDA-Public Use
  Company Number: US-ROCHE-648474

PATIENT
  Age: 31 Year
  Sex: Female

DRUGS (1)
  1. CELLCEPT [Suspect]
     Indication: LUPUS ENCEPHALITIS
     Route: 048
     Dates: end: 20090802

REACTIONS (3)
  - DRUG DOSE OMISSION [None]
  - PARALYSIS [None]
  - SYSTEMIC LUPUS ERYTHEMATOSUS [None]
